FAERS Safety Report 7512266-X (Version None)
Quarter: 2011Q2

REPORT INFORMATION
  Report Type: 
  Country: None (occurrence: None)
  Receive Date: 20110531
  Receipt Date: 20110516
  Transmission Date: 20111010
  Serious: Yes (Disabling)
  Sender: FDA-Public Use
  Company Number: PHHY2011US41869

PATIENT
  Sex: Female
  Weight: 73.469 kg

DRUGS (5)
  1. CALCIUM WITH VITAMIN D [Concomitant]
  2. WATER PILLS [Concomitant]
  3. POTASSIUM CHLORIDE [Concomitant]
  4. RECLAST [Suspect]
     Indication: OSTEOPENIA
     Dosage: 5 MG, EVERY 2 YEARS
     Route: 042
     Dates: start: 20110304
  5. MULTI-VITAMINS [Concomitant]

REACTIONS (5)
  - INFLUENZA LIKE ILLNESS [None]
  - FIBROMYALGIA [None]
  - MYALGIA [None]
  - HYPOKINESIA [None]
  - DYSSTASIA [None]
